FAERS Safety Report 5980135-2 (Version None)
Quarter: 2008Q4

REPORT INFORMATION
  Report Type: 
  Country: None (occurrence: None)
  Receive Date: 20081205
  Receipt Date: 20081104
  Transmission Date: 20090506
  Serious: No
  Sender: FDA-Public Use
  Company Number: US-BAYER-200838074NA

PATIENT
  Age: 44 Year
  Sex: Female
  Weight: 64 kg

DRUGS (3)
  1. YAZ [Suspect]
     Indication: DRUG USE FOR UNKNOWN INDICATION
     Route: 048
     Dates: start: 20070101
  2. MAGNESIUM SUPPLEMENTS [Concomitant]
  3. DIGESTIVE ENZYME [Concomitant]

REACTIONS (1)
  - BLOOD PRESSURE DIASTOLIC INCREASED [None]
